FAERS Safety Report 21232181 (Version 1)
Quarter: 2022Q3

REPORT INFORMATION
  Report Type: Spontaneous
  Country: ES (occurrence: ES)
  Receive Date: 20220819
  Receipt Date: 20220819
  Transmission Date: 20221026
  Serious: Yes (Other)
  Sender: FDA-Public Use
  Company Number: None

PATIENT
  Age: 68 Year
  Sex: Male

DRUGS (19)
  1. JANUVIA [Suspect]
     Active Substance: SITAGLIPTIN PHOSPHATE
     Indication: Diabetes mellitus
     Dosage: 1.0 COMP BREAKFAST, 28 TABLETS
     Dates: start: 20220518
  2. CANAGLIFLOZIN\METFORMIN HYDROCHLORIDE [Suspect]
     Active Substance: CANAGLIFLOZIN\METFORMIN HYDROCHLORIDE
     Indication: Diabetes mellitus
     Dosage: 1.0 COMP BEFORE BREAKFAST AND DINNER; 60 TABLETS
     Route: 048
     Dates: start: 20171127
  3. RAMIPRIL [Suspect]
     Active Substance: RAMIPRIL
     Indication: Hypertension
     Dosage: 1.0 COMP BREAKFAST, 28 TABLETS
     Dates: start: 20090406
  4. OMEPRAZOL PENSA [OMEPRAZOLE] [Concomitant]
     Indication: Iron deficiency anaemia
     Dosage: 20.0 MG BEFORE BREAKFAST, 56 CAPSULES
     Route: 048
     Dates: start: 20101110
  5. IBUPROFENO NORMON [IBUPROFEN] [Concomitant]
     Indication: Coronavirus infection
     Dosage: 600.0 MG EVERY 12 HOURS, 40 TABLETS
     Route: 048
     Dates: start: 20220720, end: 20220724
  6. BISOPROLOL [Concomitant]
     Active Substance: BISOPROLOL
     Indication: Type 2 diabetes mellitus
     Dosage: 2.5 MG BREAKFAST, 28 TABLETS
     Route: 048
     Dates: start: 20141224
  7. TOUJEO [Concomitant]
     Active Substance: INSULIN GLARGINE
     Indication: Type 2 diabetes mellitus
     Dosage: 25.0 IU EVERY 24 H, STRENGTH: 300 UNITS/ML, 3 PENS 1.5 ML
     Route: 058
     Dates: start: 20201118
  8. MYCOSTATIN [Concomitant]
     Active Substance: NYSTATIN
     Indication: Oral candidiasis
     Dosage: 500000.0 IU EVERY 6 HOURS, 1 BOTTLE OF 60 ML
     Route: 048
     Dates: start: 20220802
  9. SALBUTAMOL ALDO UNION [Concomitant]
     Indication: Bronchitis
     Dosage: 200.0 MCG EVERY 8 HOURS; STRENGTH: 100 MICROGRAMS/DOSE, SUSPENSION FOR INHALATION IN PRESSURIZED CON
     Route: 055
     Dates: start: 20220723, end: 20220729
  10. AMARYL [Concomitant]
     Active Substance: GLIMEPIRIDE
     Indication: Type 2 diabetes mellitus
     Dosage: 8.0 MG BREAKFAST, 120 TABLETS
     Route: 048
     Dates: start: 20160714
  11. ROSUVASTATINA TECNIGEN [Concomitant]
     Indication: Type 2 diabetes mellitus
     Dosage: 20.0 MG DINNER, 28 TABLETS
     Route: 048
     Dates: start: 20220128
  12. VIDESIL [Concomitant]
     Indication: Type 2 diabetes mellitus
     Dosage: 25000.0 IU EVERY 15 DAYS; 4 AMPOULES
     Route: 048
     Dates: start: 20220521
  13. CEFUROXIMA NORMON [CEFUROXIME SODIUM] [Concomitant]
     Indication: Urinary tract infection
     Dosage: 500.0 MG EVERY 12 H; 15 TABLETS
     Route: 048
     Dates: start: 20220723, end: 20220729
  14. AZITHROMYCIN [Concomitant]
     Active Substance: AZITHROMYCIN
     Indication: Coronavirus infection
     Dosage: 500.0 MG EVERY 24 H; 3 TABLETS
     Route: 048
     Dates: start: 20220720, end: 20220725
  15. AZITROMICINA MABO [Concomitant]
     Indication: Bronchitis
     Dosage: 500.0 MG EVERY 24 H; 3 TABLETS
     Route: 048
     Dates: start: 20220723, end: 20220725
  16. PARACETAMOL CINFA [Concomitant]
     Indication: Coronavirus infection
     Dosage: 1.0 G BREACKFAST, LUNCH, DINNER; 20 TABLETS
     Route: 048
     Dates: start: 20220720, end: 20220723
  17. AMOXICILINA/ACIDO CLAVULANICO ARDINECLAV [Concomitant]
     Indication: Bronchitis
     Dosage: 500.0 MG EVERY 12 H; 30 TABLETS
     Route: 048
     Dates: start: 20220801
  18. PREDNISONE [Concomitant]
     Active Substance: PREDNISONE
     Indication: Bronchitis
     Dosage: 30.0 MG BREAKFAST; 30 TABLETS
     Route: 048
     Dates: start: 20220723, end: 20220725
  19. ATROVENT [Concomitant]
     Active Substance: IPRATROPIUM BROMIDE
     Indication: Bronchitis
     Dosage: 40.0 MCG EVERY 8 HOURS; SOLUTION FOR INHALATION PRESSURIZED CONTAINER, 1 INHALER OF 200 DOSES
     Dates: start: 20220723, end: 20220729

REACTIONS (1)
  - Renal disorder [Unknown]

NARRATIVE: CASE EVENT DATE: 20220802
